FAERS Safety Report 10133790 (Version 1)
Quarter: 2014Q2

REPORT INFORMATION
  Report Type: Spontaneous
  Country: US (occurrence: US)
  Receive Date: 20140428
  Receipt Date: 20140428
  Transmission Date: 20141212
  Serious: Yes (Hospitalization)
  Sender: FDA-Public Use
  Company Number: PHHY2014US047693

PATIENT
  Age: 62 Year
  Sex: Male

DRUGS (4)
  1. HYDRALAZINE [Suspect]
     Dosage: 100 MG, TID
  2. ENALAPRIL [Concomitant]
     Indication: HYPERTENSION
  3. SIMVASTATIN [Concomitant]
  4. ASPIRIN [Concomitant]
     Indication: CEREBROVASCULAR ACCIDENT

REACTIONS (6)
  - Anti-neutrophil cytoplasmic antibody positive vasculitis [Recovering/Resolving]
  - Renal failure acute [Recovering/Resolving]
  - Proteinuria [Recovering/Resolving]
  - Large intestine polyp [Recovering/Resolving]
  - Pulmonary haemorrhage [Recovering/Resolving]
  - Glomerulonephritis [Recovering/Resolving]
